FAERS Safety Report 5046500-5 (Version None)
Quarter: 2006Q2

REPORT INFORMATION
  Report Type: 
  Country: None (occurrence: None)
  Receive Date: 20060629
  Receipt Date: 20060616
  Transmission Date: 20061013
  Serious: Yes (Hospitalization, Disabling, Other)
  Sender: FDA-Public Use
  Company Number: 2006078093

PATIENT
  Age: 45 Year
  Sex: Female
  Weight: 71.6683 kg

DRUGS (3)
  1. LYRICA [Suspect]
     Indication: NEURALGIA
     Dosage: 150 MG (50 MG, 3 IN 1 D),
     Dates: start: 20060501, end: 20060610
  2. VALIUM [Suspect]
     Dosage: 30 MG (10 MG, 3 IN 1 D),
  3. VICOPROFEN [Concomitant]

REACTIONS (9)
  - COORDINATION ABNORMAL [None]
  - DIFFICULTY IN WALKING [None]
  - DIZZINESS [None]
  - DRUG TOXICITY [None]
  - GAIT DISTURBANCE [None]
  - IMPAIRED WORK ABILITY [None]
  - NERVOUS SYSTEM DISORDER [None]
  - SOMNOLENCE [None]
  - VISION BLURRED [None]
